FAERS Safety Report 14537409 (Version 2)
Quarter: 2018Q1

REPORT INFORMATION
  Report Type: Spontaneous
  Country: US (occurrence: US)
  Receive Date: 20180215
  Receipt Date: 20180305
  Transmission Date: 20180509
  Serious: Yes (Hospitalization)
  Sender: FDA-Public Use
  Company Number: US-ACTELION-A-NJ2018-167599

PATIENT
  Age: 69 Year
  Sex: Female

DRUGS (3)
  1. REVATIO [Concomitant]
     Active Substance: SILDENAFIL CITRATE
  2. VELETRI [Suspect]
     Active Substance: EPOPROSTENOL
     Indication: PULMONARY ARTERIAL HYPERTENSION
     Dosage: 16.24 NG/KG, PER MIN
     Route: 042
  3. XARELTO [Concomitant]
     Active Substance: RIVAROXABAN

REACTIONS (5)
  - Confusional state [Unknown]
  - Fluid retention [Unknown]
  - Atrial fibrillation [Recovered/Resolved]
  - Cardioversion [Recovered/Resolved]
  - Memory impairment [Unknown]
